FAERS Safety Report 5299714-3 (Version None)
Quarter: 2007Q2

REPORT INFORMATION
  Report Type: 
  Country: None (occurrence: None)
  Receive Date: 20070410
  Receipt Date: 20070330
  Transmission Date: 20071010
  Serious: Yes (Hospitalization)
  Sender: FDA-Public Use
  Company Number: 2007AL001330

PATIENT
  Age: 88 Year
  Sex: Female

DRUGS (2)
  1. GABAPENTIN [Suspect]
  2. PREGABALIN [Concomitant]

REACTIONS (2)
  - CONFUSIONAL STATE [None]
  - DISTRACTIBILITY [None]
